FAERS Safety Report 13877408 (Version 1)
Quarter: 2017Q3

REPORT INFORMATION
  Report Type: Spontaneous
  Country: JP (occurrence: JP)
  Receive Date: 20170817
  Receipt Date: 20170817
  Transmission Date: 20171127
  Serious: Yes (Other)
  Sender: FDA-Public Use
  Company Number: JP-PFIZER INC-2017351999

PATIENT
  Age: 83 Year
  Sex: Female

DRUGS (1)
  1. NORVASC [Suspect]
     Active Substance: AMLODIPINE BESYLATE
     Indication: HYPERTENSION
     Dosage: 1 DF, 1X/DAY (AT 8:00 A.M.)
     Route: 048

REACTIONS (3)
  - Intentional product misuse [Unknown]
  - Compression fracture [Unknown]
  - Feeling abnormal [Unknown]
